FAERS Safety Report 5560644-0 (Version None)
Quarter: 2007Q4

REPORT INFORMATION
  Report Type: 
  Country: None (occurrence: None)
  Receive Date: 20071215
  Receipt Date: 20071113
  Transmission Date: 20080405
  Serious: No
  Sender: FDA-Public Use
  Company Number: US-ABBOTT-07P-163-0424980-00

PATIENT
  Sex: Male

DRUGS (1)
  1. HUMIRA [Suspect]
     Indication: RHEUMATOID ARTHRITIS
     Route: 058
     Dates: start: 20061101

REACTIONS (7)
  - ALOPECIA [None]
  - BLISTER [None]
  - DERMATITIS CONTACT [None]
  - INFECTION [None]
  - PUSTULAR PSORIASIS [None]
  - RASH [None]
  - RASH PUSTULAR [None]
